FAERS Safety Report 5137227-X (Version None)
Quarter: 2006Q4

REPORT INFORMATION
  Report Type: 
  Country: None (occurrence: None)
  Receive Date: 20061030
  Receipt Date: 20050920
  Transmission Date: 20070319
  Serious: No
  Sender: FDA-Public Use
  Company Number: US-GLAXOSMITHKLINE-A0575085A

PATIENT
  Age: 57 Year
  Sex: Female

DRUGS (1)
  1. ADVAIR HFA [Suspect]
     Route: 055
     Dates: end: 20050811

REACTIONS (3)
  - COUGH [None]
  - DYSPHONIA [None]
  - LARYNGITIS [None]
